FAERS Safety Report 4284181-9 (Version None)
Quarter: 2004Q1

REPORT INFORMATION
  Report Type: 
  Country: None (occurrence: None)
  Receive Date: 20040130
  Receipt Date: 20040108
  Transmission Date: 20041129
  Serious: Yes (Other)
  Sender: FDA-Public Use
  Company Number: US_040199832

PATIENT
  Age: 81 Year
  Sex: Female
  Weight: 82 kg

DRUGS (1)
  1. HUMALOG [Suspect]
     Dates: start: 20030101

REACTIONS (6)
  - DEVICE FAILURE [None]
  - EYE INFECTION [None]
  - MEDICATION ERROR [None]
  - RETINAL VASCULAR OCCLUSION [None]
  - VISION BLURRED [None]
  - VISUAL ACUITY REDUCED [None]
